FAERS Safety Report 5355382-3 (Version None)
Quarter: 2007Q2

REPORT INFORMATION
  Report Type: 
  Country: None (occurrence: None)
  Receive Date: 20070530
  Receipt Date: 20070117
  Transmission Date: 20071010
  Serious: Yes (Hospitalization, Other)
  Sender: FDA-Public Use
  Company Number: US200609003549

PATIENT
  Age: 55 Year
  Sex: Female
  Weight: 98.9 kg

DRUGS (1)
  1. ZYPREXA [Suspect]
     Dosage: 10 MG
     Dates: start: 19980101

REACTIONS (6)
  - AMNESIA [None]
  - CONVULSION [None]
  - DIABETES MELLITUS [None]
  - OEDEMA PERIPHERAL [None]
  - TREMOR [None]
  - WEIGHT INCREASED [None]
